FAERS Safety Report 6705189-7 (Version None)
Quarter: 2010Q2

REPORT INFORMATION
  Report Type: 
  Country: None (occurrence: None)
  Receive Date: 20100430
  Receipt Date: 20100416
  Transmission Date: 20101027
  Serious: Yes (Hospitalization)
  Sender: FDA-Public Use
  Company Number: GB-GENENTECH-300932

PATIENT
  Sex: Female
  Weight: 64 kg

DRUGS (12)
  1. RITUXIMAB [Suspect]
     Indication: B-CELL LYMPHOMA
     Dosage: 600 MG, SINGLE
     Route: 042
     Dates: start: 20100324, end: 20100324
  2. CYCLOPHOSPHAMIDE [Suspect]
     Indication: B-CELL LYMPHOMA
     Dosage: 900 MG, SINGLE
     Route: 048
     Dates: start: 20100324, end: 20100324
  3. VINCRISTINE [Suspect]
     Indication: B-CELL LYMPHOMA
     Dosage: 2 MG, SINGLE
     Route: 042
     Dates: start: 20100324, end: 20100324
  4. PREDNISOLONE [Suspect]
     Indication: B-CELL LYMPHOMA
     Dosage: 65 MG, SINGLE
     Route: 048
     Dates: start: 20100324, end: 20100328
  5. ONDANSETRON [Concomitant]
     Indication: PROPHYLAXIS OF NAUSEA AND VOMITING
     Dosage: 8 MG, SINGLE
     Route: 048
     Dates: start: 20100324, end: 20100324
  6. CHLORPHENIRAMINE MALEATE [Concomitant]
     Indication: ANTIALLERGIC THERAPY
     Dosage: 4 MG, SINGLE
     Route: 048
     Dates: start: 20100324, end: 20100324
  7. OMEPRAZOLE [Concomitant]
     Indication: DRUG USE FOR UNKNOWN INDICATION
     Dosage: 20 MG, QAM
     Route: 048
     Dates: start: 20091001, end: 20100416
  8. FUROSEMIDE [Concomitant]
     Indication: DIURETIC THERAPY
     Dosage: 40 MG, QAM
     Route: 048
  9. METOCLOPRAMIDE HYDROCHLORIDE [Concomitant]
     Indication: PROPHYLAXIS OF NAUSEA AND VOMITING
     Dosage: 10 MG, PRN
     Route: 048
     Dates: start: 20100324, end: 20100416
  10. DILTIAZAM [Concomitant]
     Indication: HYPERTENSION
     Dosage: 180 MG, BID
     Route: 048
  11. TELMISARTAN [Concomitant]
     Indication: HYPERTENSION
     Dosage: 80 MG, QAM
     Route: 048
  12. FERROUS SULFATE TAB [Concomitant]
     Indication: BLOOD IRON
     Dosage: 305 MG, QAM
     Route: 048

REACTIONS (1)
  - JAUNDICE [None]
